FAERS Safety Report 5379714-5 (Version None)
Quarter: 2007Q3

REPORT INFORMATION
  Report Type: 
  Country: None (occurrence: None)
  Receive Date: 20070706
  Receipt Date: 20070704
  Transmission Date: 20080115
  Serious: Yes (Death, Other)
  Sender: FDA-Public Use
  Company Number: PHBS2007JP08566

PATIENT
  Age: 13 Year
  Sex: Female

DRUGS (5)
  1. PREDNISOLONE [Suspect]
     Indication: CORD BLOOD TRANSPLANT THERAPY
     Dosage: 0.5 MG/KG/DAY
     Route: 065
  2. PREDNISOLONE [Suspect]
     Dosage: 1 MG/KG/DAY
  3. SANDIMMUNE [Suspect]
     Indication: CORD BLOOD TRANSPLANT THERAPY
     Route: 042
  4. ETOPOSIDE [Concomitant]
     Dosage: 35 MG/KG FOR 36 H
     Route: 042
  5. CYCLOPHOSPHAMIDE [Concomitant]
     Dosage: 120 MG/KG

REACTIONS (6)
  - CONVULSION [None]
  - DEPRESSED LEVEL OF CONSCIOUSNESS [None]
  - GRAFT VERSUS HOST DISEASE [None]
  - NEUROLOGICAL SYMPTOM [None]
  - NEUROTOXICITY [None]
  - PAIN IN EXTREMITY [None]
